FAERS Safety Report 25752081 (Version 1)
Quarter: 2025Q3

REPORT INFORMATION
  Report Type: Spontaneous
  Country: AU (occurrence: AU)
  Receive Date: 20250902
  Receipt Date: 20250902
  Transmission Date: 20251021
  Serious: Yes (Death)
  Sender: MAYNE
  Company Number: AU-MAYNE PHARMA-2025MYN000529

PATIENT
  Age: 32 Year
  Sex: Female

DRUGS (2)
  1. DORYX [Suspect]
     Active Substance: DOXYCYCLINE HYCLATE
     Indication: Cat scratch disease
     Route: 065
  2. GENTAMICIN [Suspect]
     Active Substance: GENTAMICIN
     Indication: Cat scratch disease
     Route: 065

REACTIONS (1)
  - Death [Fatal]
